FAERS Safety Report 16161745 (Version 2)
Quarter: 2019Q3

REPORT INFORMATION
  Report Type: Spontaneous
  Country: US (occurrence: US)
  Receive Date: 20190405
  Receipt Date: 20190722
  Transmission Date: 20191004
  Serious: No
  Sender: FDA-Public Use
  Company Number: US-PFIZER INC-2019142075

PATIENT
  Age: 69 Year
  Sex: Male
  Weight: 106.5 kg

DRUGS (9)
  1. SIMVASTATIN. [Concomitant]
     Active Substance: SIMVASTATIN
     Indication: BLOOD CHOLESTEROL ABNORMAL
     Dosage: 40 MG, 1X/DAY
     Dates: start: 2014
  2. TAMSULOSIN HCL [Concomitant]
     Active Substance: TAMSULOSIN HYDROCHLORIDE
     Indication: BLADDER DISORDER
     Dosage: 0.4 MG, 1X/DAY
     Dates: start: 2014
  3. ASPIRIN 81 [Concomitant]
     Active Substance: ASPIRIN
     Indication: CARDIAC DISORDER
     Dosage: 81 1 A DAY
     Dates: start: 2013
  4. IBRANCE [Concomitant]
     Active Substance: PALBOCICLIB
     Indication: NEOPLASM MALIGNANT
     Dosage: 100 MG, 1X/DAY
     Dates: start: 2018
  5. METOPROLOL SUCCINATE. [Concomitant]
     Active Substance: METOPROLOL SUCCINATE
     Indication: BLOOD PRESSURE ABNORMAL
     Dosage: 12.5 MG, DAILY; (25 MG 1/2 A DAY)
     Dates: start: 2015
  6. GABAPENTIN. [Suspect]
     Active Substance: GABAPENTIN
     Indication: NEUROPATHY PERIPHERAL
     Dosage: 2 PILLS DAILY
     Dates: start: 2015
  7. GABAPENTIN. [Suspect]
     Active Substance: GABAPENTIN
     Indication: PAIN
     Dosage: 10 MG, 2X/DAY
     Dates: start: 201601, end: 201808
  8. DULOXETINE HCL [Concomitant]
     Active Substance: DULOXETINE HYDROCHLORIDE
     Indication: NEUROPATHY PERIPHERAL
     Dosage: 20 MG, 1X/DAY
     Dates: start: 2018
  9. LEVOTHYROXINE. [Concomitant]
     Active Substance: LEVOTHYROXINE
     Indication: THYROID DISORDER
     Dosage: 75 UG, 1X/DAY
     Dates: start: 2014

REACTIONS (3)
  - Off label use [Unknown]
  - Drug ineffective for unapproved indication [Not Recovered/Not Resolved]
  - Somnolence [Unknown]

NARRATIVE: CASE EVENT DATE: 2015
